FAERS Safety Report 10074277 (Version 1)
Quarter: 2014Q2

REPORT INFORMATION
  Report Type: Spontaneous
  Country: US (occurrence: US)
  Receive Date: 20140411
  Receipt Date: 20140411
  Transmission Date: 20141212
  Serious: No
  Sender: FDA-Public Use
  Company Number: US-SANOFI-AVENTIS-2013SA041307

PATIENT
  Sex: Female

DRUGS (3)
  1. ALLEGRA D [Suspect]
  2. ALLEGRA [Concomitant]
  3. SUDAFED [Concomitant]

REACTIONS (2)
  - Medication residue present [Unknown]
  - Drug ineffective [Unknown]
